FAERS Safety Report 11714415 (Version 1)
Quarter: 2015Q4

REPORT INFORMATION
  Report Type: Spontaneous
  Country: US (occurrence: None)
  Receive Date: 20151106
  Receipt Date: 20151106
  Transmission Date: 20160304
  Serious: Yes (Life-Threatening, Hospitalization)
  Sender: FDA-Public Use
  Company Number: None

PATIENT
  Age: 71 Year
  Sex: Female
  Weight: 80.29 kg

DRUGS (1)
  1. MULTIHANCE [Suspect]
     Active Substance: GADOBENATE DIMEGLUMINE
     Indication: SCAN BRAIN
     Route: 042
     Dates: start: 20151104

REACTIONS (3)
  - Pulse absent [None]
  - Nausea [None]
  - Cyanosis [None]

NARRATIVE: CASE EVENT DATE: 20151104
